FAERS Safety Report 8555540-0 (Version None)
Quarter: 2012Q3

REPORT INFORMATION
  Report Type: 
  Country: None (occurrence: None)
  Receive Date: 20120731
  Receipt Date: 20120314
  Transmission Date: 20120928
  Serious: Yes (Life-Threatening, Other)
  Sender: FDA-Public Use
  Company Number: US-ASTRAZENECA-2010SE52834

PATIENT
  Age: 35 Year
  Sex: Male
  Weight: 104.3 kg

DRUGS (5)
  1. SEROQUEL [Suspect]
     Route: 048
  2. SEROQUEL [Suspect]
     Route: 048
  3. SEROQUEL [Suspect]
     Route: 048
  4. SEROQUEL [Suspect]
     Indication: SLEEP DISORDER
     Route: 048
     Dates: start: 20070101
  5. SEROQUEL [Suspect]
     Route: 048

REACTIONS (8)
  - BACK PAIN [None]
  - OFF LABEL USE [None]
  - THERAPEUTIC RESPONSE UNEXPECTED [None]
  - INSOMNIA [None]
  - TACHYPHRENIA [None]
  - SUICIDE ATTEMPT [None]
  - FEELING ABNORMAL [None]
  - DRUG DOSE OMISSION [None]
